FAERS Safety Report 8339199-3 (Version None)
Quarter: 2012Q2

REPORT INFORMATION
  Report Type: 
  Country: None (occurrence: None)
  Receive Date: 20120502
  Receipt Date: 20120423
  Transmission Date: 20120825
  Serious: Yes (Life-Threatening, Hospitalization)
  Sender: FDA-Public Use
  Company Number: 2012SP017106

PATIENT
  Age: 49 Year
  Sex: Male
  Weight: 84 kg

DRUGS (3)
  1. PEGASYS [Suspect]
     Indication: PRODUCT USED FOR UNKNOWN INDICATION
     Dates: start: 20120114, end: 20120326
  2. VICTRELIS [Suspect]
     Indication: HEPATITIS C
     Dosage: 2400 MG, QD
     Dates: start: 20120114, end: 20120326
  3. COPEGUS [Suspect]
     Indication: PRODUCT USED FOR UNKNOWN INDICATION

REACTIONS (3)
  - ANAEMIA [None]
  - MYOCARDIAL INFARCTION [None]
  - APPARENT LIFE THREATENING EVENT [None]
